FAERS Safety Report 7974833-9 (Version None)
Quarter: 2011Q4

REPORT INFORMATION
  Report Type: 
  Country: None (occurrence: None)
  Receive Date: 20111213
  Receipt Date: 20111206
  Transmission Date: 20120403
  Serious: Yes (Death, Hospitalization, Other)
  Sender: FDA-Public Use
  Company Number: US-US-EMD SERONO, INC.-7020765

PATIENT
  Sex: Female
  Weight: 54 kg

DRUGS (17)
  1. REBIF [Suspect]
     Route: 058
     Dates: start: 20070401
  2. BACLOFEN [Concomitant]
  3. REBIF [Suspect]
     Dates: start: 20100601
  4. DURAGESIC-100 [Concomitant]
  5. TRAMADOL HCL [Concomitant]
     Route: 002
  6. CELEBREX [Concomitant]
  7. FOSAMAX [Concomitant]
  8. XANAX [Concomitant]
  9. FLEXERIL [Concomitant]
  10. LASIX [Concomitant]
  11. OXYBUTYNIN [Concomitant]
  12. LIDODERM [Concomitant]
  13. MIRAPEX [Concomitant]
  14. NOVANTRONE [Concomitant]
     Dates: start: 20091001
  15. VICODIN [Concomitant]
  16. REBIF [Suspect]
     Indication: MULTIPLE SCLEROSIS
     Dates: start: 20030101, end: 20060101
  17. REBIF [Suspect]
     Dates: end: 20080401

REACTIONS (11)
  - DEPRESSION [None]
  - GENERAL PHYSICAL HEALTH DETERIORATION [None]
  - ANGER [None]
  - SUICIDE ATTEMPT [None]
  - SUICIDAL IDEATION [None]
  - MUSCLE ATROPHY [None]
  - MULTIPLE SCLEROSIS [None]
  - COMPLETED SUICIDE [None]
  - LOGORRHOEA [None]
  - SYNCOPE [None]
  - URINARY TRACT INFECTION [None]
